FAERS Safety Report 14532652 (Version 1)
Quarter: 2018Q1

REPORT INFORMATION
  Report Type: Spontaneous
  Country: CN (occurrence: CN)
  Receive Date: 20180214
  Receipt Date: 20180214
  Transmission Date: 20180509
  Serious: Yes (Hospitalization, Other)
  Sender: FDA-Public Use
  Company Number: CN-GILEAD-2018-0320989

PATIENT
  Age: 39 Year
  Sex: Male

DRUGS (1)
  1. HEPSERA [Suspect]
     Active Substance: ADEFOVIR DIPIVOXIL
     Indication: CHRONIC HEPATITIS B
     Dosage: 10 MG, QD
     Route: 065

REACTIONS (8)
  - Blood potassium decreased [Recovering/Resolving]
  - Nephropathy [Recovering/Resolving]
  - Blood phosphorus decreased [Recovering/Resolving]
  - Bone density decreased [Recovering/Resolving]
  - Spinal osteoarthritis [Unknown]
  - Back pain [Recovering/Resolving]
  - Movement disorder [Recovering/Resolving]
  - Fanconi syndrome acquired [Recovering/Resolving]
